FAERS Safety Report 8247404-7 (Version None)
Quarter: 2012Q1

REPORT INFORMATION
  Report Type: 
  Country: None (occurrence: None)
  Receive Date: 20120330
  Receipt Date: 20120328
  Transmission Date: 20120608
  Serious: Yes (Other)
  Sender: FDA-Public Use
  Company Number: JP-B.I. PHARMACEUTICALS,INC./RIDGEFIELD-2012-BP-05715NB

PATIENT
  Age: 8 Decade
  Sex: Female

DRUGS (7)
  1. MICARDIS [Suspect]
     Indication: HYPERTENSION
     Dosage: 40 MG
     Route: 048
     Dates: start: 20120207
  2. LIPITOR [Concomitant]
     Dosage: 10 MG
     Route: 048
     Dates: start: 20120207
  3. NOVORAPID 30 MIX [Concomitant]
     Route: 048
     Dates: start: 20120207
  4. MERISLON [Concomitant]
     Dosage: 36 MG
     Route: 048
     Dates: start: 20120207
  5. ASPIRIN [Concomitant]
     Dosage: 100 MG
     Route: 048
     Dates: start: 20120207
  6. FAMOTIDINE [Concomitant]
     Dosage: 40 MG
     Route: 048
     Dates: start: 20120207
  7. BASEN [Concomitant]
     Dosage: 0.6 MG
     Route: 048
     Dates: start: 20120207

REACTIONS (1)
  - NEOPLASM MALIGNANT [None]
